FAERS Safety Report 5388415-9 (Version None)
Quarter: 2007Q3

REPORT INFORMATION
  Report Type: 
  Country: None (occurrence: None)
  Receive Date: 20070716
  Receipt Date: 20070703
  Transmission Date: 20080115
  Serious: Yes (Hospitalization)
  Sender: FDA-Public Use
  Company Number: JP-PURDUE-MAG_2007_0000565

PATIENT
  Age: 64 Year
  Sex: Male

DRUGS (6)
  1. MORPHINE SULFATE [Suspect]
     Indication: OESOPHAGEAL CARCINOMA
     Dosage: 180 MG, DAILY
     Route: 048
  2. FENTANYL [Suspect]
     Indication: OESOPHAGEAL CARCINOMA
     Dosage: 35 MG, TID
     Route: 062
  3. MORPHINE [Suspect]
     Indication: OESOPHAGEAL CARCINOMA
     Dosage: 436 MG, DAILY
     Route: 065
  4. MORPHINE [Suspect]
     Dosage: 140 MG, DAILY
     Route: 042
  5. DICLOFENAC SODIUM [Concomitant]
     Indication: OESOPHAGEAL CARCINOMA
     Dosage: 75 MG, TID
     Route: 054
  6. MIDAZOLAM HCL [Concomitant]

REACTIONS (1)
  - PARADOXICAL PAIN [None]
